FAERS Safety Report 5447962-1 (Version None)
Quarter: 2007Q3

REPORT INFORMATION
  Report Type: 
  Country: None (occurrence: None)
  Receive Date: 20070910
  Receipt Date: 20070828
  Transmission Date: 20080115
  Serious: No
  Sender: FDA-Public Use
  Company Number: US-BOEHRINGER INGELHEIM PHARMACEUTICALS, INC.-2007-BP-19966BP

PATIENT
  Sex: Male

DRUGS (3)
  1. FLOMAX [Suspect]
     Indication: BENIGN PROSTATIC HYPERPLASIA
     Route: 048
     Dates: start: 20070827
  2. ATENOLOL [Concomitant]
     Indication: HYPERTENSION
  3. NIFEDICAL [Concomitant]
     Indication: HYPERTENSION

REACTIONS (4)
  - BLOOD URINE PRESENT [None]
  - DRUG EFFECT DECREASED [None]
  - NEPHROLITHIASIS [None]
  - PENILE PAIN [None]
